FAERS Safety Report 7736454-2 (Version None)
Quarter: 2011Q3

REPORT INFORMATION
  Report Type: 
  Country: None (occurrence: None)
  Receive Date: 20110908
  Receipt Date: 20110830
  Transmission Date: 20111222
  Serious: Yes (Hospitalization, Other)
  Sender: FDA-Public Use
  Company Number: AU-BRISTOL-MYERS SQUIBB COMPANY-16017311

PATIENT
  Age: 65 Year
  Sex: Female

DRUGS (3)
  1. LASIX [Concomitant]
     Dosage: 80 MG MANE + MIDD DAY
     Dates: start: 20110815
  2. AMILORIDE HYDROCHLORIDE [Concomitant]
     Dosage: MANE MIDDAY
     Dates: start: 20110815
  3. DASATINIB [Suspect]
     Indication: CHRONIC MYELOID LEUKAEMIA
     Route: 048
     Dates: start: 20080221, end: 20110823

REACTIONS (1)
  - HYPOXIA [None]
